FAERS Safety Report 6739184-9 (Version None)
Quarter: 2010Q2

REPORT INFORMATION
  Report Type: 
  Country: None (occurrence: None)
  Receive Date: 20100525
  Receipt Date: 20100216
  Transmission Date: 20101027
  Serious: No
  Sender: FDA-Public Use
  Company Number: A0844719A

PATIENT
  Age: 53 Year
  Sex: Male

DRUGS (1)
  1. VERAMYST [Suspect]
     Route: 045

REACTIONS (1)
  - DRUG INEFFECTIVE [None]
